FAERS Safety Report 6840268-5 (Version None)
Quarter: 2010Q3

REPORT INFORMATION
  Report Type: 
  Country: None (occurrence: None)
  Receive Date: 20100713
  Receipt Date: 20100713
  Transmission Date: 20110219
  Serious: Yes (Life-Threatening, Hospitalization)
  Sender: FDA-Public Use
  Company Number: None

PATIENT
  Sex: Male
  Weight: 74.8435 kg

DRUGS (1)
  1. GAVILYTE-C PEG-3350 W/FLAVOR PEG-3350 -240 G- 4 LITERS GAVIS PHARMACEU [Suspect]
     Indication: COLONOSCOPY
     Dosage: 8 OZ UP TO 3 LITERS EVERY 10 MIN PO APPROX12:30 PM TO 2:30 PM
     Route: 048
     Dates: start: 20100711, end: 20100711

REACTIONS (2)
  - BLOOD POTASSIUM DECREASED [None]
  - CONVULSION [None]
